FAERS Safety Report 6639830-4 (Version None)
Quarter: 2010Q1

REPORT INFORMATION
  Report Type: 
  Country: None (occurrence: None)
  Receive Date: 20100318
  Receipt Date: 20100310
  Transmission Date: 20100710
  Serious: Yes (Other)
  Sender: FDA-Public Use
  Company Number: AU-NAPPMUNDI-GBR-2010-0006252

PATIENT
  Age: 34 Year
  Sex: Male

DRUGS (5)
  1. MORPHINE SULFATE [Suspect]
     Indication: ANALGESIC THERAPY
     Dosage: 540 MG, DAILY
     Route: 058
  2. MORPHINE SULFATE [Suspect]
     Dosage: 950 MG, DAILY
     Route: 048
  3. OXYCODONE HCL [Suspect]
     Indication: ANALGESIC THERAPY
     Route: 065
  4. DOMPERIDONE [Concomitant]
     Indication: ANTIEMETIC SUPPORTIVE CARE
  5. NAPROXEN [Concomitant]
     Indication: ANALGESIC INTERVENTION SUPPORTIVE THERAPY

REACTIONS (1)
  - MYOCLONUS [None]
